FAERS Safety Report 11042921 (Version 3)
Quarter: 2015Q4

REPORT INFORMATION
  Report Type: Report from Study
  Country: EG (occurrence: EG)
  Receive Date: 20150417
  Receipt Date: 20151104
  Transmission Date: 20160304
  Serious: Yes (Other)
  Sender: FDA-Public Use
  Company Number: EG-ROCHE-1564377

PATIENT
  Age: 61 Year
  Sex: Female

DRUGS (1)
  1. RANIBIZUMAB [Suspect]
     Active Substance: RANIBIZUMAB
     Indication: DIABETIC RETINAL OEDEMA
     Dosage: MOST RECENT BEFORE SAE LUCENTIS DOSE ON 15 AUG 2014, 50 UL
     Route: 050
     Dates: start: 20140526

REACTIONS (3)
  - Retinal aneurysm [Unknown]
  - Retinopathy proliferative [Unknown]
  - Vitreous haemorrhage [Not Recovered/Not Resolved]

NARRATIVE: CASE EVENT DATE: 20141010
